FAERS Safety Report 21294655 (Version 1)
Quarter: 2022Q3

REPORT INFORMATION
  Report Type: Spontaneous
  Country: US (occurrence: US)
  Receive Date: 20220905
  Receipt Date: 20220905
  Transmission Date: 20221027
  Serious: Yes (Other)
  Sender: FDA-Public Use
  Company Number: US-OTSUKA-2022_043132

PATIENT

DRUGS (9)
  1. BUSULFAN [Suspect]
     Active Substance: BUSULFAN
     Indication: Peripheral T-cell lymphoma unspecified
     Dosage: 105 MG/M2, QD (DAY ?8 TO ?5)
     Route: 042
  2. BUSULFAN [Suspect]
     Active Substance: BUSULFAN
     Indication: Allogenic stem cell transplantation
  3. MELPHALAN [Suspect]
     Active Substance: MELPHALAN
     Indication: Peripheral T-cell lymphoma unspecified
     Dosage: 60 MG/M2, QD (DAYS ?3 AND ?2)
     Route: 065
  4. MELPHALAN [Suspect]
     Active Substance: MELPHALAN
     Indication: Allogenic stem cell transplantation
  5. GEMCITABINE [Suspect]
     Active Substance: GEMCITABINE
     Indication: Peripheral T-cell lymphoma unspecified
     Dosage: 2700 MG/M2 (DAYS ?8 AND ?3)
     Route: 065
  6. GEMCITABINE [Suspect]
     Active Substance: GEMCITABINE
     Indication: Allogenic stem cell transplantation
  7. LEVETIRACETAM [Concomitant]
     Active Substance: LEVETIRACETAM
     Indication: Bone marrow conditioning regimen
     Dosage: UNK
     Route: 065
  8. URSODIOL [Concomitant]
     Active Substance: URSODIOL
     Indication: Bone marrow conditioning regimen
     Dosage: UNK
     Route: 065
  9. PALIFERMIN [Concomitant]
     Active Substance: PALIFERMIN
     Indication: Bone marrow conditioning regimen
     Dosage: UNK
     Route: 065

REACTIONS (2)
  - Colitis [Unknown]
  - Appendicitis [Unknown]
